FAERS Safety Report 19323832 (Version 1)
Quarter: 2021Q2

REPORT INFORMATION
  Report Type: Report from Study
  Country: JP (occurrence: JP)
  Receive Date: 20210528
  Receipt Date: 20210528
  Transmission Date: 20210717
  Serious: Yes (Other)
  Sender: FDA-Public Use
  Company Number: JP-SUN PHARMACEUTICAL INDUSTRIES LTD-2021R1-298535

PATIENT
  Age: 71 Year
  Sex: Female

DRUGS (2)
  1. PACLITAXEL. [Concomitant]
     Active Substance: PACLITAXEL
     Indication: OVARIAN EPITHELIAL CANCER
     Dosage: 175 MILLIGRAM/SQ. METER, OVER 3 HOURS
     Route: 042
  2. CARBOPLATIN. [Suspect]
     Active Substance: CARBOPLATIN
     Indication: OVARIAN EPITHELIAL CANCER
     Dosage: 5 MILLIGRAM, MINUTE/ML
     Route: 042

REACTIONS (5)
  - Palmar erythema [Unknown]
  - Pruritus [Unknown]
  - Dyspnoea [Unknown]
  - Hypotension [Unknown]
  - Bronchospasm [Unknown]
